FAERS Safety Report 15410564 (Version 2)
Quarter: 2018Q4

REPORT INFORMATION
  Report Type: Spontaneous
  Country: JP (occurrence: JP)
  Receive Date: 20180921
  Receipt Date: 20181019
  Transmission Date: 20190204
  Serious: Yes (Other)
  Sender: FDA-Public Use
  Company Number: JP-009507513-1809JPN009162

PATIENT
  Age: 62 Year
  Sex: Male

DRUGS (7)
  1. TRYPTANOL [Suspect]
     Active Substance: AMITRIPTYLINE
     Indication: DEPRESSION
     Dosage: 100 MG, QD
     Route: 048
  2. RENIVACE [Suspect]
     Active Substance: ENALAPRIL
     Indication: CHRONIC KIDNEY DISEASE
     Dosage: 2.5 MG, QD
     Route: 048
     Dates: start: 20180810, end: 20180907
  3. SITAGLIPTIN PHOSPHATE [Suspect]
     Active Substance: SITAGLIPTIN PHOSPHATE
     Indication: TYPE 2 DIABETES MELLITUS
     Dosage: 50 MG, QD
     Route: 048
     Dates: start: 20180628, end: 20180907
  4. ROZEREM [Concomitant]
     Active Substance: RAMELTEON
  5. LUNESTA [Suspect]
     Active Substance: ESZOPICLONE
     Indication: INSOMNIA
     Dosage: 2 MG, QD
     Route: 048
  6. BELSOMRA [Suspect]
     Active Substance: SUVOREXANT
     Indication: INSOMNIA
     Dosage: 8 MG, QD
     Route: 048
  7. MAGMITT [Concomitant]
     Active Substance: MAGNESIUM OXIDE

REACTIONS (1)
  - Rhabdomyolysis [Unknown]

NARRATIVE: CASE EVENT DATE: 20180906
